FAERS Safety Report 7249523-0 (Version None)
Quarter: 2011Q1

REPORT INFORMATION
  Report Type: 
  Country: None (occurrence: None)
  Receive Date: 20110128
  Receipt Date: 20110120
  Transmission Date: 20110831
  Serious: Yes (Death, Hospitalization)
  Sender: FDA-Public Use
  Company Number: US-SANOFI-AVENTIS-2010SA070111

PATIENT
  Age: 81 Year
  Sex: Female
  Weight: 98 kg

DRUGS (2)
  1. MULTAQ [Suspect]
     Route: 048
     Dates: start: 20100325, end: 20101026
  2. BACTRIM [Suspect]
     Route: 048
     Dates: start: 20100916

REACTIONS (6)
  - DEATH [None]
  - HEPATIC FAILURE [None]
  - CONDITION AGGRAVATED [None]
  - BLOOD BILIRUBIN INCREASED [None]
  - JAUNDICE [None]
  - MENTAL STATUS CHANGES [None]
